FAERS Safety Report 21085618 (Version 2)
Quarter: 2022Q4

REPORT INFORMATION
  Report Type: Spontaneous
  Country: BR (occurrence: BR)
  Receive Date: 20220715
  Receipt Date: 20221007
  Transmission Date: 20230113
  Serious: Yes (Hospitalization, Disabling)
  Sender: FDA-Public Use
  Company Number: BR-CHEPLA-2022006016

PATIENT
  Sex: Female

DRUGS (3)
  1. CLONAZEPAM [Suspect]
     Active Substance: CLONAZEPAM
     Indication: Insomnia
     Dosage: 1 TABLET A DAY (UP TO 3 OR 4 TOO)
     Route: 048
     Dates: start: 20220701
  2. CLONAZEPAM [Suspect]
     Active Substance: CLONAZEPAM
     Indication: Insomnia
     Dosage: MANY YEARS AGO?DAILY DOSE: 0.5 MILLIGRAM
     Route: 048
     Dates: end: 20220701
  3. PROPRANOLOL [Concomitant]
     Active Substance: PROPRANOLOL HYDROCHLORIDE
     Indication: Hypertension
     Dosage: 2 TABLETS A DAY, MANY YEARS AGO
     Route: 048

REACTIONS (6)
  - Surgery [Recovering/Resolving]
  - Walking disability [Recovered/Resolved]
  - Impaired driving ability [Not Recovered/Not Resolved]
  - Prescription drug used without a prescription [Not Recovered/Not Resolved]
  - Product use in unapproved indication [Recovered/Resolved]
  - Incorrect product administration duration [Not Recovered/Not Resolved]
